FAERS Safety Report 7164379-2 (Version None)
Quarter: 2010Q4

REPORT INFORMATION
  Report Type: 
  Country: None (occurrence: None)
  Receive Date: 20101123
  Receipt Date: 20100920
  Transmission Date: 20110411
  Serious: No
  Sender: FDA-Public Use
  Company Number: 015681

PATIENT
  Sex: Female
  Weight: 68 kg

DRUGS (3)
  1. CIMZIA [Suspect]
     Indication: CROHN'S DISEASE
     Dosage: (400 MG 1X/4 WEEKS SUBCUTANEOUS)
     Route: 058
     Dates: start: 20100501
  2. IMURAN [Concomitant]
  3. CYMBALTA [Concomitant]

REACTIONS (9)
  - ARTHRALGIA [None]
  - HYPERSENSITIVITY [None]
  - JOINT SWELLING [None]
  - MALAISE [None]
  - NASOPHARYNGITIS [None]
  - NAUSEA [None]
  - PAIN [None]
  - PHARYNGITIS STREPTOCOCCAL [None]
  - SYSTEMIC LUPUS ERYTHEMATOSUS [None]
